FAERS Safety Report 12745116 (Version 1)
Quarter: 2016Q3

REPORT INFORMATION
  Report Type: Spontaneous
  Country: US (occurrence: US)
  Receive Date: 20160915
  Receipt Date: 20160915
  Transmission Date: 20161109
  Serious: Yes (Life-Threatening, Hospitalization, Other)
  Sender: FDA-Public Use
  Company Number: US-ZYDUS-012050

PATIENT
  Age: 50 Year
  Sex: Female

DRUGS (2)
  1. HYDROXYCHLOROQUINE [Suspect]
     Active Substance: HYDROXYCHLOROQUINE
     Indication: SYSTEMIC LUPUS ERYTHEMATOSUS
     Route: 048
  2. HYDROXYCHLOROQUINE [Suspect]
     Active Substance: HYDROXYCHLOROQUINE
     Indication: SYSTEMIC LUPUS ERYTHEMATOSUS
     Route: 048

REACTIONS (10)
  - Loss of consciousness [Recovered/Resolved]
  - Electrocardiogram QT prolonged [Not Recovered/Not Resolved]
  - Palpitations [Recovered/Resolved]
  - Arrhythmia [Recovered/Resolved]
  - Syncope [Recovered/Resolved]
  - Atrioventricular block first degree [Unknown]
  - Chest discomfort [Recovered/Resolved]
  - Fall [Recovered/Resolved]
  - Injury [Unknown]
  - Toxicity to various agents [Recovered/Resolved]
